FAERS Safety Report 7803557-3 (Version None)
Quarter: 2011Q4

REPORT INFORMATION
  Report Type: 
  Country: None (occurrence: None)
  Receive Date: 20111009
  Receipt Date: 20110930
  Transmission Date: 20120403
  Serious: No
  Sender: FDA-Public Use
  Company Number: US-B.I. PHARMACEUTICALS,INC./RIDGEFIELD-2011-BP-23350BP

PATIENT
  Age: 72 Year
  Sex: Male

DRUGS (8)
  1. DIGOXIN [Concomitant]
  2. PAXIL [Concomitant]
  3. FLOMAX [Concomitant]
  4. VALIUM [Concomitant]
  5. NEXIUM [Concomitant]
     Indication: BURNING SENSATION
  6. PRADAXA [Suspect]
     Indication: ATRIAL FIBRILLATION
     Dosage: 300 MG
     Route: 048
     Dates: start: 20110801
  7. METOPROLOL TARTRATE [Concomitant]
     Indication: HYPERTENSION
  8. DIAZEPAM [Concomitant]

REACTIONS (2)
  - PROSTATITIS [None]
  - DYSPEPSIA [None]
